FAERS Safety Report 9942567 (Version 1)
Quarter: 2014Q1

REPORT INFORMATION
  Report Type: Report from Study
  Country: US (occurrence: US)
  Receive Date: 20140303
  Receipt Date: 20140303
  Transmission Date: 20141002
  Serious: No
  Sender: FDA-Public Use
  Company Number: US-ABBVIE-13P-163-1044380-00

PATIENT
  Age: 49 Year
  Sex: Female
  Weight: 115.77 kg

DRUGS (11)
  1. HUMIRA [Suspect]
     Indication: RHEUMATOID ARTHRITIS
     Dates: start: 2007
  2. METHOTREXATE [Suspect]
     Indication: RHEUMATOID ARTHRITIS
  3. HYDROCHLOROTHIAZIDE [Concomitant]
     Indication: SWELLING
  4. FOLIC ACID [Concomitant]
     Indication: VITAMIN SUPPLEMENTATION
  5. OMEPRAZOLE [Concomitant]
     Indication: GASTROOESOPHAGEAL REFLUX DISEASE
  6. SERTALINE [Concomitant]
     Indication: DEPRESSION
  7. BISOPROLOL [Concomitant]
     Indication: HYPERTENSION
  8. VITAMIN B12 (CYANOCOBALAMIN AND ANALOGUES) [Concomitant]
     Indication: PRODUCT USED FOR UNKNOWN INDICATION
  9. CRESTOR [Concomitant]
     Indication: BLOOD CHOLESTEROL INCREASED
  10. PRO AIR [Concomitant]
     Indication: ASTHMA
     Route: 055
  11. ADVAIR [Concomitant]
     Indication: ASTHMA

REACTIONS (5)
  - Muscular weakness [Not Recovered/Not Resolved]
  - Local swelling [Not Recovered/Not Resolved]
  - Incorrect route of drug administration [Recovered/Resolved]
  - Tremor [Recovered/Resolved]
  - Migraine [Recovered/Resolved]
